FAERS Safety Report 5330660-2 (Version None)
Quarter: 2007Q2

REPORT INFORMATION
  Report Type: 
  Country: None (occurrence: None)
  Receive Date: 20070522
  Receipt Date: 20070516
  Transmission Date: 20071010
  Serious: Yes (Hospitalization)
  Sender: FDA-Public Use
  Company Number: HQWYE244316MAY07

PATIENT
  Age: 40 Year
  Sex: Female

DRUGS (3)
  1. CORDARONE [Suspect]
     Indication: DRUG USE FOR UNKNOWN INDICATION
     Dosage: NOT SPECIFIED
     Route: 042
  2. CORDARONE [Interacting]
     Dosage: NOT SPECIFIED
     Route: 042
  3. CLEXANE [Interacting]
     Indication: DRUG USE FOR UNKNOWN INDICATION
     Route: 042

REACTIONS (3)
  - CHEST PAIN [None]
  - DRUG INTERACTION [None]
  - TACHYCARDIA PAROXYSMAL [None]
